FAERS Safety Report 14133481 (Version 2)
Quarter: 2018Q2

REPORT INFORMATION
  Report Type: Spontaneous
  Country: IT (occurrence: IT)
  Receive Date: 20171026
  Receipt Date: 20180601
  Transmission Date: 20180711
  Serious: No
  Sender: FDA-Public Use
  Company Number: IT-TAKEDA-2017TUS022120

PATIENT
  Age: 74 Year
  Sex: Female

DRUGS (5)
  1. ENTYVIO [Suspect]
     Active Substance: VEDOLIZUMAB
     Indication: COLITIS ULCERATIVE
     Dosage: 300 MG, UNK
     Route: 042
     Dates: start: 20170718, end: 20170901
  2. MESALAZINE [Concomitant]
     Active Substance: MESALAMINE
     Indication: COLITIS ULCERATIVE
     Dosage: 2400 MG, UNK
     Route: 048
  3. IDEOS [Concomitant]
     Active Substance: CALCIUM CARBONATE\CHOLECALCIFEROL
     Dosage: UNK
  4. PREDNISONE. [Concomitant]
     Active Substance: PREDNISONE
     Dosage: 15 MG, UNK
     Route: 048
  5. PANTOPRAZOLE [Concomitant]
     Active Substance: PANTOPRAZOLE
     Dosage: 40 MG, UNK
     Route: 048

REACTIONS (2)
  - Clostridial infection [Recovered/Resolved]
  - Drug ineffective [Recovered/Resolved]

NARRATIVE: CASE EVENT DATE: 20170927
